FAERS Safety Report 6525839-8 (Version None)
Quarter: 2010Q1

REPORT INFORMATION
  Report Type: 
  Country: None (occurrence: None)
  Receive Date: 20100104
  Receipt Date: 20091222
  Transmission Date: 20100710
  Serious: Yes (Other)
  Sender: FDA-Public Use
  Company Number: B0617537A

PATIENT
  Sex: Female
  Weight: 68 kg

DRUGS (2)
  1. ZINNAT [Suspect]
     Indication: SINUSITIS
     Route: 065
     Dates: start: 20091209, end: 20091215
  2. SERACTIL [Concomitant]
     Indication: INFLAMMATION
     Route: 065
     Dates: start: 20091209

REACTIONS (10)
  - CARDIOVASCULAR DISORDER [None]
  - COUGH [None]
  - DIARRHOEA [None]
  - HEADACHE [None]
  - ILL-DEFINED DISORDER [None]
  - NAUSEA [None]
  - PRURITUS [None]
  - SKIN EXFOLIATION [None]
  - SNEEZING [None]
  - VERTIGO [None]
